FAERS Safety Report 8319301-X (Version None)
Quarter: 2012Q2

REPORT INFORMATION
  Report Type: 
  Country: None (occurrence: None)
  Receive Date: 20120427
  Receipt Date: 20090909
  Transmission Date: 20120825
  Serious: No
  Sender: FDA-Public Use
  Company Number: US-TEVA-2009010280

PATIENT
  Sex: Male
  Weight: 94.432 kg

DRUGS (3)
  1. NUVIGIL [Suspect]
     Indication: SLEEP APNOEA SYNDROME
     Dosage: 150 MILLIGRAM;
     Route: 048
     Dates: start: 20090831
  2. UROXATRAL [Concomitant]
  3. NEXIUM [Concomitant]

REACTIONS (4)
  - OROPHARYNGEAL PAIN [None]
  - DYSPHAGIA [None]
  - ODYNOPHAGIA [None]
  - PHARYNGEAL OEDEMA [None]
